FAERS Safety Report 19007654 (Version 1)
Quarter: 2021Q1

REPORT INFORMATION
  Report Type: Spontaneous
  Country: PT (occurrence: PT)
  Receive Date: 20210315
  Receipt Date: 20210315
  Transmission Date: 20210420
  Serious: Yes (Hospitalization, Other)
  Sender: FDA-Public Use
  Company Number: PT-NORTHSTAR HEALTHCARE HOLDINGS-PT-2021NSR000012

PATIENT
  Age: 49 Year
  Sex: Male

DRUGS (1)
  1. ALLOPURINOL. [Suspect]
     Active Substance: ALLOPURINOL
     Indication: OLIGOARTHRITIS
     Dosage: UNK
     Route: 065

REACTIONS (1)
  - Myocarditis [Recovered/Resolved]
